FAERS Safety Report 24019065 (Version 1)
Quarter: 2024Q2

REPORT INFORMATION
  Report Type: Other
  Country: NL (occurrence: NL)
  Receive Date: 20240627
  Receipt Date: 20240627
  Transmission Date: 20240716
  Serious: Yes (Hospitalization, Other)
  Sender: FDA-Public Use
  Company Number: NL-ACI HealthCare Limited-2158599

PATIENT
  Age: 24 Year
  Sex: Male
  Weight: 44 kg

DRUGS (10)
  1. TRAMADOL HYDROCHLORIDE [Suspect]
     Active Substance: TRAMADOL HYDROCHLORIDE
     Indication: Product used for unknown indication
     Route: 065
  2. FENTANYL [Interacting]
     Active Substance: FENTANYL\FENTANYL CITRATE
     Route: 065
  3. POLYETHYLENE GLYCOLS [Concomitant]
     Active Substance: POLYETHYLENE GLYCOLS
     Route: 065
  4. BISACODYL [Concomitant]
     Active Substance: BISACODYL
     Route: 065
  5. Calcium Carbonate/Colecalciferole [Concomitant]
     Route: 065
  6. OMEPRAZOLE [Concomitant]
     Active Substance: OMEPRAZOLE
     Route: 065
  7. DICLOFENAC [Concomitant]
     Active Substance: DICLOFENAC
     Route: 065
  8. ACETAMINOPHEN [Concomitant]
     Active Substance: ACETAMINOPHEN
     Route: 065
  9. BACLOFEN [Interacting]
     Active Substance: BACLOFEN
     Route: 037
  10. PIRITRAMIDE [Interacting]
     Active Substance: PIRITRAMIDE
     Route: 042

REACTIONS (4)
  - Depressed level of consciousness [Recovered/Resolved]
  - Drug interaction [Unknown]
  - Overdose [Unknown]
  - Respiratory depression [Recovered/Resolved]

NARRATIVE: CASE EVENT DATE: 20120101
